FAERS Safety Report 5203762-9 (Version None)
Quarter: 2007Q1

REPORT INFORMATION
  Report Type: 
  Country: None (occurrence: None)
  Receive Date: 20070109
  Receipt Date: 20070109
  Transmission Date: 20070707
  Serious: Yes (Hospitalization)
  Sender: FDA-Public Use
  Company Number: None

PATIENT
  Sex: Male
  Weight: 79.3795 kg

DRUGS (5)
  1. CETUXIMAB - 260 MG / M2 WEEKLY [Suspect]
     Indication: OESOPHAGEAL CARCINOMA
     Dosage: 1285 MG, IV
     Route: 042
     Dates: start: 20061103
  2. CETUXIMAB - 260 MG / M2 WEEKLY [Suspect]
     Indication: OESOPHAGEAL CARCINOMA
     Dosage: 1285 MG, IV
     Route: 042
     Dates: start: 20061107
  3. OXALIPLATIN -50 MG /M2  WEEKLY [Suspect]
     Indication: OESOPHAGEAL CARCINOMA
     Dosage: 100 MG , IV
     Route: 042
     Dates: start: 20061107
  4. ZANTAC [Concomitant]
  5. NEXIUM [Concomitant]

REACTIONS (5)
  - DEHYDRATION [None]
  - DYSPHAGIA [None]
  - INTESTINAL OBSTRUCTION [None]
  - INTRA-ABDOMINAL HAEMORRHAGE [None]
  - OESOPHAGEAL OBSTRUCTION [None]
